FAERS Safety Report 12933060 (Version 1)
Quarter: 2016Q4

REPORT INFORMATION
  Report Type: Spontaneous
  Country: US (occurrence: US)
  Receive Date: 20161111
  Receipt Date: 20161111
  Transmission Date: 20170207
  Serious: No
  Sender: FDA-Public Use
  Company Number: US-JNJFOC-20161023260

PATIENT
  Age: 48 Year
  Sex: Female
  Weight: 78.02 kg

DRUGS (2)
  1. ZYRTEC-D [Suspect]
     Active Substance: CETIRIZINE HYDROCHLORIDE\PSEUDOEPHEDRINE HYDROCHLORIDE
     Indication: PHARYNGITIS STREPTOCOCCAL
     Dosage: ONE IN THE MORNING AND ONE AT NIGHT
     Route: 048
     Dates: start: 201609
  2. ZYRTEC-D [Suspect]
     Active Substance: CETIRIZINE HYDROCHLORIDE\PSEUDOEPHEDRINE HYDROCHLORIDE
     Indication: PHARYNGITIS STREPTOCOCCAL
     Route: 048

REACTIONS (3)
  - Product use issue [Unknown]
  - Therapeutic response unexpected [Unknown]
  - Off label use [Unknown]
